FAERS Safety Report 9353882 (Version 2)
Quarter: 2013Q3

REPORT INFORMATION
  Report Type: Spontaneous
  Country: US (occurrence: US)
  Receive Date: 20130618
  Receipt Date: 20130708
  Transmission Date: 20140515
  Serious: No
  Sender: FDA-Public Use
  Company Number: US-PFIZER INC-2013177756

PATIENT
  Age: 55 Year
  Sex: Female

DRUGS (1)
  1. CLINDAMYCIN PHOSPHATE [Suspect]
     Dosage: UNK
     Route: 047

REACTIONS (4)
  - Off label use [Unknown]
  - Drug hypersensitivity [Unknown]
  - House dust allergy [Unknown]
  - Seasonal allergy [Unknown]
